FAERS Safety Report 5461121-8 (Version None)
Quarter: 2007Q3

REPORT INFORMATION
  Report Type: 
  Country: None (occurrence: None)
  Receive Date: 20070918
  Receipt Date: 20070918
  Transmission Date: 20080115
  Serious: Yes (Other)
  Sender: FDA-Public Use
  Company Number: None

PATIENT

DRUGS (1)
  1. AMBISOME [Suspect]
     Dosage: }5MG/KG

REACTIONS (3)
  - DEVICE INTERACTION [None]
  - DRUG INTERACTION [None]
  - LABORATORY TEST INTERFERENCE [None]
